FAERS Safety Report 23028235 (Version 1)
Quarter: 2023Q4

REPORT INFORMATION
  Report Type: Report from Study
  Country: IT (occurrence: IT)
  Receive Date: 20231004
  Receipt Date: 20231004
  Transmission Date: 20240110
  Serious: Yes (Hospitalization)
  Sender: FDA-Public Use
  Company Number: IT-009507513-2308ITA003075

PATIENT
  Age: 48 Year
  Sex: Female

DRUGS (8)
  1. CARBOPLATIN [Suspect]
     Active Substance: CARBOPLATIN
     Indication: Neoadjuvant therapy
     Dosage: UNK
     Route: 042
     Dates: start: 20230607, end: 20230710
  2. CARBOPLATIN [Suspect]
     Active Substance: CARBOPLATIN
     Dosage: UNK
     Route: 042
     Dates: start: 20230725
  3. CARBOPLATIN [Suspect]
     Active Substance: CARBOPLATIN
     Dosage: 32.98 MG, WEEKLY
     Route: 042
     Dates: start: 20230421, end: 20230530
  4. PACLITAXEL [Suspect]
     Active Substance: PACLITAXEL
     Indication: Neoadjuvant therapy
     Dosage: 17.48 MILLIGRAM, QW
     Route: 042
     Dates: start: 20230421, end: 20230530
  5. PACLITAXEL [Suspect]
     Active Substance: PACLITAXEL
     Dosage: UNK
     Route: 042
     Dates: start: 20230725
  6. PACLITAXEL [Suspect]
     Active Substance: PACLITAXEL
     Dosage: DOSE REDUCED 100 MG
     Route: 042
     Dates: start: 20230607, end: 20230710
  7. PEMBROLIZUMAB [Suspect]
     Active Substance: PEMBROLIZUMAB
     Indication: Neoadjuvant therapy
     Dosage: 200 MILLIGRAM, Q3W
     Route: 042
     Dates: start: 20230620, end: 20230710
  8. PEMBROLIZUMAB [Suspect]
     Active Substance: PEMBROLIZUMAB
     Dosage: 200 MILLIGRAM
     Route: 042
     Dates: start: 20230421, end: 20230530

REACTIONS (4)
  - Blood bilirubin increased [Unknown]
  - Hepatitis [Unknown]
  - Hypertransaminasaemia [Unknown]
  - Hypertransaminasaemia [Recovered/Resolved]

NARRATIVE: CASE EVENT DATE: 20230101
